FAERS Safety Report 9702345 (Version 2)
Quarter: 2014Q2

REPORT INFORMATION
  Report Type: Spontaneous
  Country: US (occurrence: US)
  Receive Date: 20131121
  Receipt Date: 20140523
  Transmission Date: 20141212
  Serious: Yes (Hospitalization)
  Sender: FDA-Public Use
  Company Number: US-B.I. PHARMACEUTICALS,INC./RIDGEFIELD-2013-BI-37674BP

PATIENT
  Sex: Male
  Weight: 95.25 kg

DRUGS (10)
  1. PRADAXA [Suspect]
     Indication: ANTICOAGULANT THERAPY
     Dosage: 150 MG
     Route: 048
     Dates: start: 20110731, end: 20120629
  2. PRADAXA [Suspect]
     Indication: ATRIAL FIBRILLATION
  3. CALCITRIOL [Concomitant]
     Dosage: 0.25 MCG
     Route: 048
  4. COREG [Concomitant]
     Dosage: 4 MG
     Route: 048
  5. HYDRALAZINE [Concomitant]
     Route: 065
  6. SIMVASTATIN [Concomitant]
     Dosage: 20 MG
     Route: 048
  7. CLONIDINE [Concomitant]
     Dosage: 0.2 MG
     Route: 048
  8. LASIX [Concomitant]
     Dosage: 80 MG
     Route: 048
  9. PROPRANOLOL [Concomitant]
     Route: 065
  10. ENALAPRIL [Concomitant]
     Route: 065

REACTIONS (7)
  - Subdural haematoma [Unknown]
  - Gastrointestinal haemorrhage [Recovered/Resolved]
  - Toxicity to various agents [Unknown]
  - Renal failure acute [Unknown]
  - Anaemia [Unknown]
  - Coagulopathy [Unknown]
  - Epistaxis [Recovered/Resolved]
